FAERS Safety Report 25031254 (Version 1)
Quarter: 2025Q1

REPORT INFORMATION
  Report Type: Spontaneous
  Country: US (occurrence: None)
  Receive Date: 20250228
  Receipt Date: 20250228
  Transmission Date: 20250408
  Serious: Yes (Death)
  Sender: FDA-CTU
  Company Number: None

PATIENT
  Age: 71 Year
  Sex: Male

DRUGS (17)
  1. PIRFENIDONE [Suspect]
     Active Substance: PIRFENIDONE
     Indication: Interstitial lung disease
     Dosage: 801MG QD ORAL ?
     Dates: start: 20230502, end: 20250128
  2. ASPIRIN [Concomitant]
     Active Substance: ASPIRIN
  3. TRAZODONE [Concomitant]
     Active Substance: TRAZODONE HYDROCHLORIDE
  4. ALBUTEROL SULFATE [Concomitant]
     Active Substance: ALBUTEROL SULFATE
  5. VITAMIN C [Concomitant]
     Active Substance: ASCORBIC ACID
  6. FLONASE [Concomitant]
     Active Substance: FLUTICASONE PROPIONATE
  7. XALATAN OPHT DROP [Concomitant]
  8. ATROVENT [Concomitant]
     Active Substance: IPRATROPIUM BROMIDE
  9. ACYCLOVIR [Concomitant]
     Active Substance: ACYCLOVIR
  10. OMEPRAZOLE LEXAPRO [Concomitant]
  11. METOPROLOL [Concomitant]
     Active Substance: METOPROLOL
  12. LOSARTAN [Concomitant]
     Active Substance: LOSARTAN
  13. MONTELUKAST [Concomitant]
     Active Substance: MONTELUKAST
  14. ROSUVASTATIN [Concomitant]
     Active Substance: ROSUVASTATIN
  15. SPIRIVA RESPIMAT [Concomitant]
     Active Substance: TIOTROPIUM BROMIDE
  16. EZETIMIBE [Concomitant]
     Active Substance: EZETIMIBE
  17. BREYNA HFA [Concomitant]

REACTIONS (3)
  - Dyspnoea [None]
  - Chest discomfort [None]
  - Unresponsive to stimuli [None]

NARRATIVE: CASE EVENT DATE: 20250128
